FAERS Safety Report 6171607-9 (Version None)
Quarter: 2009Q2

REPORT INFORMATION
  Report Type: 
  Country: None (occurrence: None)
  Receive Date: 20090428
  Receipt Date: 20090428
  Transmission Date: 20091009
  Serious: Yes (Other)
  Sender: FDA-Public Use
  Company Number: None

PATIENT
  Age: 74 Year
  Sex: Female
  Weight: 61.2356 kg

DRUGS (1)
  1. LYRICA [Suspect]
     Indication: PAIN IN EXTREMITY
     Dosage: 3 PER DAY BUCCAL
     Route: 002
     Dates: start: 20090304, end: 20090420

REACTIONS (4)
  - DIZZINESS [None]
  - FATIGUE [None]
  - SWELLING FACE [None]
  - THROAT TIGHTNESS [None]
